FAERS Safety Report 8732576 (Version 2)
Quarter: 2013Q2

REPORT INFORMATION
  Report Type: Report from Study
  Country: IT (occurrence: IT)
  Receive Date: 20120820
  Receipt Date: 20130625
  Transmission Date: 20140414
  Serious: Yes (Hospitalization, Other)
  Sender: FDA-Public Use
  Company Number: IT-ROCHE-1102060

PATIENT
  Sex: 0

DRUGS (8)
  1. TRASTUZUMAB [Suspect]
     Indication: HER-2 POSITIVE BREAST CANCER
     Dosage: LOADING DOSE
     Route: 065
  2. TRASTUZUMAB [Suspect]
     Dosage: MAINTENANCE DOSE
     Route: 065
  3. LAPATINIB [Suspect]
     Indication: HER-2 POSITIVE BREAST CANCER
     Dosage: ARM B
     Route: 048
  4. LAPATINIB [Suspect]
     Dosage: ARM C
     Route: 048
  5. PACLITAXEL [Suspect]
     Indication: HER-2 POSITIVE BREAST CANCER
     Route: 065
  6. FLUOROURACIL [Suspect]
     Indication: HER-2 POSITIVE BREAST CANCER
     Route: 065
  7. EPIRUBICIN [Suspect]
     Indication: HER-2 POSITIVE BREAST CANCER
     Route: 065
  8. CYCLOPHOSPHAMIDE [Suspect]
     Indication: HER-2 POSITIVE BREAST CANCER
     Route: 065

REACTIONS (10)
  - Neutropenia [Unknown]
  - Mucosal inflammation [Unknown]
  - Hepatotoxicity [Unknown]
  - Nausea [Unknown]
  - Vomiting [Unknown]
  - Diarrhoea [Unknown]
  - Skin toxicity [Unknown]
  - Abdominal pain [Unknown]
  - Fatigue [Unknown]
  - Hypersensitivity [Unknown]
